FAERS Safety Report 8413081-5 (Version None)
Quarter: 2012Q2

REPORT INFORMATION
  Report Type: 
  Country: None (occurrence: None)
  Receive Date: 20120605
  Receipt Date: 20120530
  Transmission Date: 20120825
  Serious: No
  Sender: FDA-Public Use
  Company Number: US-AMGEN-USASP2012033786

PATIENT
  Age: 44 Year
  Sex: Female

DRUGS (1)
  1. ENBREL [Suspect]
     Indication: PSORIASIS
     Dosage: 50 MG, QWK
     Dates: start: 20080101

REACTIONS (7)
  - MEMORY IMPAIRMENT [None]
  - PSORIASIS [None]
  - INJECTION SITE PAIN [None]
  - FATIGUE [None]
  - RASH PUSTULAR [None]
  - STRESS [None]
  - FAMILY STRESS [None]
